FAERS Safety Report 9812568 (Version 1)
Quarter: 2014Q1

REPORT INFORMATION
  Report Type: Spontaneous
  Country: US (occurrence: US)
  Receive Date: 20140113
  Receipt Date: 20140113
  Transmission Date: 20141002
  Serious: Yes (Death, Other)
  Sender: FDA-Public Use
  Company Number: US-PAR PHARMACEUTICAL, INC-2014SCPR007872

PATIENT
  Age: 2 Year
  Sex: Female

DRUGS (1)
  1. DIPHENOXYLATE HCI + ATROPINE SULFATE [Suspect]
     Indication: PRODUCT USED FOR UNKNOWN INDICATION
     Dosage: UNK, UNKNOWN
     Route: 048

REACTIONS (8)
  - Death [Fatal]
  - Toxicity to various agents [Fatal]
  - Cerebellar infarction [Fatal]
  - Brain oedema [Fatal]
  - Hydrocephalus [Fatal]
  - Diabetes insipidus [Fatal]
  - Aspiration [Fatal]
  - Hypocalcaemia [Fatal]
